FAERS Safety Report 10531217 (Version 1)
Quarter: 2014Q4

REPORT INFORMATION
  Report Type: Spontaneous
  Country: NL (occurrence: NL)
  Receive Date: 20141021
  Receipt Date: 20141021
  Transmission Date: 20150529
  Serious: Yes (Other)
  Sender: FDA-Public Use
  Company Number: NL-TEVA-515977ISR

PATIENT
  Sex: Male
  Weight: 71 kg

DRUGS (2)
  1. HYDROCHLOORTHIAZIDE TABLET 12,5MG [Suspect]
     Active Substance: HYDROCHLOROTHIAZIDE
     Indication: RENAL DISORDER
     Dosage: 12.5 MILLIGRAM DAILY; ONCE DAILY ONE PIECE
     Route: 048
     Dates: start: 2013
  2. PERINDOPRIL TERT-BUTYLAMINE SANDOZ TABLET 4MG [Interacting]
     Active Substance: PERINDOPRIL ERBUMINE
     Indication: HYPERTENSION
     Dosage: 8 MILLIGRAM DAILY; TWICE DAILY ONE PIECE
     Route: 048
     Dates: start: 2011

REACTIONS (2)
  - Drug interaction [Unknown]
  - Haemorrhagic diathesis [Not Recovered/Not Resolved]

NARRATIVE: CASE EVENT DATE: 2013
